FAERS Safety Report 8830780 (Version 1)
Quarter: 2012Q4

REPORT INFORMATION
  Report Type: 
  Country: US (occurrence: US)
  Receive Date: 20121009
  Receipt Date: 20121009
  Transmission Date: 20130627
  Serious: Yes (Other)
  Sender: FDA-Public Use
  Company Number: US-009507513-1210USA000277

PATIENT
  Sex: Female

DRUGS (2)
  1. PEG-INTRON [Suspect]
     Indication: HEPATITIS C
     Dosage: UNK
     Dates: start: 20061103, end: 20070126
  2. REBETOL [Suspect]
     Indication: HEPATITIS C
     Dosage: UNK
     Dates: start: 20061102, end: 20070126

REACTIONS (4)
  - Glucose tolerance impaired [Unknown]
  - Hepatic cirrhosis [Unknown]
  - Drug ineffective [Unknown]
  - Malaise [Unknown]
